FAERS Safety Report 8983815 (Version 2)
Quarter: 2013Q1

REPORT INFORMATION
  Report Type: Spontaneous
  Country: MX (occurrence: MX)
  Receive Date: 20121224
  Receipt Date: 20130116
  Transmission Date: 20140127
  Serious: Yes (Death)
  Sender: FDA-Public Use
  Company Number: MX-ROCHE-1170462

PATIENT
  Age: 48 Year
  Sex: Female
  Weight: 98 kg

DRUGS (3)
  1. VINORELBINE [Concomitant]
     Indication: BREAST CANCER STAGE III
     Route: 048
     Dates: start: 20110202
  2. AVASTIN [Suspect]
     Indication: BREAST CANCER STAGE III
     Route: 042
     Dates: start: 20111201
  3. XELODA [Concomitant]
     Indication: BREAST CANCER STAGE III
     Route: 048
     Dates: start: 20121207

REACTIONS (2)
  - Disease progression [Fatal]
  - Cerebral haemorrhage [Fatal]
